FAERS Safety Report 4344186-6 (Version None)
Quarter: 2004Q2

REPORT INFORMATION
  Report Type: 
  Country: None (occurrence: None)
  Receive Date: 20040419
  Receipt Date: 20040409
  Transmission Date: 20050107
  Serious: Yes (Hospitalization)
  Sender: FDA-Public Use
  Company Number: 2004-02-1150

PATIENT
  Age: 37 Year
  Sex: Male
  Weight: 65.7716 kg

DRUGS (9)
  1. CELESTONE [Suspect]
     Indication: BRONCHITIS ACUTE
     Dosage: ORAL
     Route: 048
     Dates: start: 20031129, end: 20031203
  2. PERIDONOPRIL/INDAPAMIDE TABLETS [Suspect]
     Indication: HYPERTENSION
     Dosage: 1 QD ORAL
     Route: 048
  3. TAREG (VALSARTAN) TABLETS [Suspect]
     Indication: HYPERTENSION
     Dosage: 1 QD ORAL
     Route: 048
  4. KETEK [Suspect]
     Indication: BRONCHITIS ACUTE
     Dosage: ORAL
     Route: 048
     Dates: start: 20031129, end: 20031203
  5. PNEUMOREL TABLETS [Suspect]
     Indication: BRONCHITIS ACUTE
     Dosage: ORAL
     Route: 048
     Dates: start: 20031129, end: 20031203
  6. VACCINE (NOS) [Concomitant]
     Indication: LEPTOSPIROSIS
     Dosage: SUBCUTANEOUS
     Route: 058
     Dates: start: 20031027, end: 20031127
  7. VACCINE (NOS) [Concomitant]
     Indication: PROPHYLAXIS
     Dosage: SUBCUTANEOUS
     Route: 058
     Dates: start: 20031027, end: 20031127
  8. DIMETAPP [Concomitant]
  9. ACETAMINOPHEN [Concomitant]

REACTIONS (7)
  - ANGINA PECTORIS [None]
  - BLOOD CREATINE PHOSPHOKINASE INCREASED [None]
  - BRONCHITIS [None]
  - CARDIAC FLUTTER [None]
  - CONGESTIVE CARDIOMYOPATHY [None]
  - GENERAL PHYSICAL HEALTH DETERIORATION [None]
  - IMMUNISATION [None]
